FAERS Safety Report 6243952-X (Version None)
Quarter: 2009Q2

REPORT INFORMATION
  Report Type: 
  Country: None (occurrence: None)
  Receive Date: 20090623
  Receipt Date: 20090615
  Transmission Date: 20091009
  Serious: Yes (Hospitalization)
  Sender: FDA-Public Use
  Company Number: 2009007334

PATIENT
  Sex: Male

DRUGS (3)
  1. TREANDA [Suspect]
     Dosage: 182 MG, CYCLE DAYS 1, 4 INTRAVENOUS (NOT OTHERWISE SPECIFIED)
     Route: 042
  2. BORTEZOMIB (BORTEZOMIB) [Concomitant]
  3. RITUXIMAB (RITUXIMAB) [Concomitant]

REACTIONS (3)
  - ATRIAL FIBRILLATION [None]
  - PLEURAL EFFUSION [None]
  - PNEUMONIA [None]
